FAERS Safety Report 7950590-7 (Version None)
Quarter: 2011Q4

REPORT INFORMATION
  Report Type: 
  Country: None (occurrence: None)
  Receive Date: 20111130
  Receipt Date: 20110915
  Transmission Date: 20120403
  Serious: Yes (Other)
  Sender: FDA-Public Use
  Company Number: US-AMGEN-USASP2011044771

PATIENT
  Age: 53 Year
  Sex: Female

DRUGS (2)
  1. TARCEVA [Concomitant]
     Indication: LUNG NEOPLASM MALIGNANT
  2. XGEVA [Suspect]
     Indication: METASTASES TO BONE
     Dosage: 120 MG, Q4WK
     Route: 058
     Dates: start: 20110509, end: 20110509

REACTIONS (6)
  - PAIN OF SKIN [None]
  - PURULENT DISCHARGE [None]
  - SEXUAL DYSFUNCTION [None]
  - INFECTED SKIN ULCER [None]
  - INJURY [None]
  - EMOTIONAL DISTRESS [None]
